FAERS Safety Report 16611792 (Version 1)
Quarter: 2019Q3

REPORT INFORMATION
  Report Type: Spontaneous
  Country: US (occurrence: US)
  Receive Date: 20190722
  Receipt Date: 20190722
  Transmission Date: 20191004
  Serious: No
  Sender: FDA-Public Use
  Company Number: US-ALLERGAN-1913459US

PATIENT
  Age: 46 Year
  Sex: Female

DRUGS (9)
  1. TRELSTAR [Suspect]
     Active Substance: TRIPTORELIN PAMOATE
     Dosage: 3.75 MG, SINGLE
     Route: 065
     Dates: start: 20181130, end: 20181130
  2. VYVANSE [Concomitant]
     Active Substance: LISDEXAMFETAMINE DIMESYLATE
  3. TRELSTAR [Suspect]
     Active Substance: TRIPTORELIN PAMOATE
     Dosage: UNK UNK, SINGLE
     Route: 065
     Dates: start: 20190322, end: 20190322
  4. AROMASIN [Concomitant]
     Active Substance: EXEMESTANE
  5. ZOLOFT [Concomitant]
     Active Substance: SERTRALINE HYDROCHLORIDE
  6. TAMOXIFEN [Concomitant]
     Active Substance: TAMOXIFEN
  7. ADDERALL [Concomitant]
     Active Substance: AMPHETAMINE ASPARTATE\AMPHETAMINE SULFATE\DEXTROAMPHETAMINE SACCHARATE\DEXTROAMPHETAMINE SULFATE
  8. TRELSTAR [Suspect]
     Active Substance: TRIPTORELIN PAMOATE
     Indication: BREAST CANCER
     Dosage: 11.25 MG, SINGLE
     Route: 065
     Dates: start: 20190327, end: 20190327
  9. TRELSTAR [Suspect]
     Active Substance: TRIPTORELIN PAMOATE
     Dosage: 11.25 MG, SINGLE
     Route: 065
     Dates: start: 20181228, end: 20181228

REACTIONS (5)
  - Product dose omission [Unknown]
  - Incorrect dose administered [Unknown]
  - Device leakage [Unknown]
  - Off label use [Unknown]
  - Device malfunction [Unknown]

NARRATIVE: CASE EVENT DATE: 20181130
